FAERS Safety Report 19814782 (Version 3)
Quarter: 2022Q2

REPORT INFORMATION
  Report Type: Spontaneous
  Country: ES (occurrence: ES)
  Receive Date: 20210909
  Receipt Date: 20220517
  Transmission Date: 20220721
  Serious: Yes (Other)
  Sender: FDA-Public Use
  Company Number: None

PATIENT
  Age: 43 Year

DRUGS (2)
  1. BEVACIZUMAB [Suspect]
     Active Substance: BEVACIZUMAB
     Indication: Invasive ductal breast carcinoma
     Dosage: 15 MG/M2, 21 DAYS
     Route: 065
  2. CAPECITABINE [Concomitant]
     Active Substance: CAPECITABINE
     Indication: Invasive ductal breast carcinoma
     Dosage: 1500 MG/M2 FOR 14 DAYS
     Route: 065

REACTIONS (3)
  - Tongue geographic [Recovering/Resolving]
  - Oral pain [Recovering/Resolving]
  - Atrophic glossitis [Recovering/Resolving]
